FAERS Safety Report 5481470-7 (Version None)
Quarter: 2007Q4

REPORT INFORMATION
  Report Type: 
  Country: None (occurrence: None)
  Receive Date: 20071010
  Receipt Date: 20071001
  Transmission Date: 20080405
  Serious: Yes (Other)
  Sender: FDA-Public Use
  Company Number: AU-BRISTOL-MYERS SQUIBB COMPANY-13933056

PATIENT
  Age: 64 Year
  Sex: Male

DRUGS (2)
  1. FOSINOPRIL SODIUM [Suspect]
  2. ATORVASTATIN CALCIUM [Suspect]
     Dosage: INITIALLY 20 MG/DAY FOR THREE YEARS.

REACTIONS (1)
  - INTERSTITIAL LUNG DISEASE [None]
